FAERS Safety Report 19721129 (Version 1)
Quarter: 2021Q3

REPORT INFORMATION
  Report Type: Spontaneous
  Country: US (occurrence: US)
  Receive Date: 20210819
  Receipt Date: 20210819
  Transmission Date: 20211014
  Serious: No
  Sender: FDA-Public Use
  Company Number: US-PFIZER INC-2020067924

PATIENT
  Age: 74 Year
  Sex: Female
  Weight: 49.9 kg

DRUGS (1)
  1. METHOTREXATE SODIUM. [Suspect]
     Active Substance: METHOTREXATE SODIUM
     Dosage: UNK

REACTIONS (8)
  - Feeling abnormal [Unknown]
  - Pain in extremity [Unknown]
  - Illness [Unknown]
  - Intentional product misuse [Unknown]
  - Feeding disorder [Unknown]
  - Weight decreased [Unknown]
  - Tremor [Unknown]
  - Hypoaesthesia [Unknown]
